FAERS Safety Report 18959681 (Version 3)
Quarter: 2021Q1

REPORT INFORMATION
  Report Type: Spontaneous
  Country: US (occurrence: US)
  Receive Date: 20210302
  Receipt Date: 20210326
  Transmission Date: 20210420
  Serious: Yes (Hospitalization)
  Sender: FDA-Public Use
  Company Number: US-ALLERGAN-2104370US

PATIENT
  Sex: Female

DRUGS (3)
  1. LATISSE [Suspect]
     Active Substance: BIMATOPROST
     Indication: GROWTH OF EYELASHES
     Dosage: UNK
     Route: 061
     Dates: end: 202012
  2. LATISSE [Suspect]
     Active Substance: BIMATOPROST
     Indication: GROWTH OF EYELASHES
     Dosage: UNK
     Route: 061
     Dates: start: 202012, end: 20210126
  3. BOTOX [Suspect]
     Active Substance: ONABOTULINUMTOXINA
     Indication: MIGRAINE
     Dosage: UNK, SINGLE
     Dates: start: 202012, end: 202012

REACTIONS (9)
  - Vomiting [Unknown]
  - Migraine [Unknown]
  - Swelling face [Unknown]
  - Photophobia [Unknown]
  - Product dose omission issue [Unknown]
  - Inappropriate schedule of product administration [Unknown]
  - Swelling of eyelid [Unknown]
  - Headache [Unknown]
  - Aura [Unknown]
